FAERS Safety Report 25749959 (Version 1)
Quarter: 2025Q3

REPORT INFORMATION
  Report Type: Spontaneous
  Country: EU (occurrence: EU)
  Receive Date: 20250902
  Receipt Date: 20250902
  Transmission Date: 20251021
  Serious: Yes (Other)
  Sender: AUROBINDO
  Company Number: EU-LRB-01080192

PATIENT
  Age: 36 Year
  Sex: Female
  Weight: 50 kg

DRUGS (1)
  1. PREGABALIN [Suspect]
     Active Substance: PREGABALIN
     Indication: Procedural pain
     Dosage: 50 MILLIGRAM, TWO TIMES A DAY (2X PER DAG 2 STUKS; NA 3 MAANDEN 2X PER DAG 1 STUK)
     Route: 048
     Dates: start: 20250101

REACTIONS (4)
  - Panic attack [Recovered/Resolved]
  - Mood swings [Recovered/Resolved]
  - Depressed mood [Recovered/Resolved]
  - Withdrawal syndrome [Recovered/Resolved]
